FAERS Safety Report 17397573 (Version 3)
Quarter: 2020Q1

REPORT INFORMATION
  Report Type: Spontaneous
  Country: BR (occurrence: BR)
  Receive Date: 20200210
  Receipt Date: 20200325
  Transmission Date: 20200409
  Serious: Yes (Other)
  Sender: FDA-Public Use
  Company Number: BR-PFIZER INC-2020052101

PATIENT
  Age: 60 Year
  Sex: Female

DRUGS (1)
  1. PRISTIQ EXTENDED-RELEASE [Suspect]
     Active Substance: DESVENLAFAXINE SUCCINATE
     Dosage: UNK
     Dates: start: 2017

REACTIONS (6)
  - Somnolence [Unknown]
  - Product physical issue [Unknown]
  - Drug ineffective [Unknown]
  - Blindness [Not Recovered/Not Resolved]
  - Anxiety [Unknown]
  - Poor quality product administered [Unknown]
